FAERS Safety Report 11427587 (Version 2)
Quarter: 2016Q3

REPORT INFORMATION
  Report Type: Spontaneous
  Country: US (occurrence: US)
  Receive Date: 20150827
  Receipt Date: 20160831
  Transmission Date: 20161109
  Serious: No
  Sender: FDA-Public Use
  Company Number: US-SA-2015SA058584

PATIENT
  Age: 69 Year
  Sex: Female
  Weight: 58.51 kg

DRUGS (2)
  1. AVAPRO [Concomitant]
     Active Substance: IRBESARTAN
     Dosage: STRENGTH: 150 MG
  2. IRBESARTAN. [Suspect]
     Active Substance: IRBESARTAN
     Indication: HYPERTENSION
     Route: 065

REACTIONS (5)
  - Dyspnoea [Unknown]
  - Rash [Not Recovered/Not Resolved]
  - Urticaria [Unknown]
  - Blood pressure increased [Not Recovered/Not Resolved]
  - Confusional state [Not Recovered/Not Resolved]
